FAERS Safety Report 9300393 (Version 4)
Quarter: 2013Q3

REPORT INFORMATION
  Report Type: Spontaneous
  Country: FR (occurrence: FR)
  Receive Date: 20130521
  Receipt Date: 20130724
  Transmission Date: 20140515
  Serious: Yes (Hospitalization)
  Sender: FDA-Public Use
  Company Number: FR-PFIZER INC-2013151848

PATIENT
  Age: 64 Year
  Sex: Male
  Weight: 73 kg

DRUGS (5)
  1. XALKORI [Suspect]
     Indication: LUNG NEOPLASM MALIGNANT
     Dosage: 500 MG DAILY
     Dates: start: 20120417
  2. XALKORI [Suspect]
     Dosage: 200 MG, 2X/DAY
     Route: 048
     Dates: end: 20130515
  3. SOLU-MEDROL [Concomitant]
     Dosage: 80 MG, 1X/DAY
     Route: 042
     Dates: start: 20130516
  4. INEXIUM [Concomitant]
     Dosage: 40 MG, 1X/DAY
     Route: 042
     Dates: start: 20130516
  5. INNOHEP [Concomitant]
     Dosage: 3500 (NO UNIT PROVIDED) DAILY IN 1 INTAKE
     Route: 058

REACTIONS (6)
  - Pancytopenia [Not Recovered/Not Resolved]
  - Bone marrow failure [Unknown]
  - Anaemia [Unknown]
  - Neutropenia [Unknown]
  - Thrombocytopenia [Unknown]
  - Transaminases increased [Recovered/Resolved]
